FAERS Safety Report 8908378 (Version 2)
Quarter: 2014Q2

REPORT INFORMATION
  Report Type: Spontaneous
  Country: US (occurrence: US)
  Receive Date: 20121114
  Receipt Date: 20131024
  Transmission Date: 20141212
  Serious: No
  Sender: FDA-Public Use
  Company Number: US-PFIZER INC-2012280314

PATIENT
  Age: 58 Year
  Sex: Female
  Weight: 68.03 kg

DRUGS (2)
  1. DEPO-MEDROL [Suspect]
     Indication: TENDONITIS
     Dosage: 40 MG, SINGLE
     Route: 014
     Dates: start: 20121107, end: 20121107
  2. LIDOCAINE HCL [Suspect]
     Indication: TENDONITIS
     Dosage: UNK
     Route: 014
     Dates: start: 20121107, end: 20121107

REACTIONS (1)
  - Arthralgia [Not Recovered/Not Resolved]
